FAERS Safety Report 7111229-6 (Version None)
Quarter: 2010Q4

REPORT INFORMATION
  Report Type: 
  Country: None (occurrence: None)
  Receive Date: 20101118
  Receipt Date: 20100201
  Transmission Date: 20110411
  Serious: No
  Sender: FDA-Public Use
  Company Number: US-PFIZER INC-2010014102

PATIENT
  Sex: Female
  Weight: 80.74 kg

DRUGS (5)
  1. ZYVOX [Suspect]
     Indication: BREAST CELLULITIS
     Dosage: 600 MG, 2X/DAY
     Route: 042
     Dates: start: 20100129
  2. METFORMIN [Concomitant]
     Dosage: 500 MG, 2X/DAY
  3. NEURONTIN [Concomitant]
     Dosage: 300 MG, 2X/DAY
  4. VITAMIN D [Concomitant]
     Dosage: 2000 IU, 1X/DAY
  5. VITAMIN B-12 [Concomitant]
     Dosage: 500 UG, 1X/DAY

REACTIONS (1)
  - CHEST DISCOMFORT [None]
